FAERS Safety Report 9061757 (Version 2)
Quarter: 2013Q1

REPORT INFORMATION
  Report Type: Spontaneous
  Country: US (occurrence: None)
  Receive Date: 20130122
  Receipt Date: 20130225
  Transmission Date: 20140127
  Serious: Yes (Death, Hospitalization, Other)
  Sender: FDA-Public Use
  Company Number: CLHC20130001

PATIENT
  Age: 16 Year
  Sex: Female

DRUGS (1)
  1. COLCHICINE [Suspect]
     Indication: COMPLETED SUICIDE
     Dosage: UNKNOWN,  UNKNOWN,  ORAL?UNKNOWN  -  /  / 2011
     Route: 048
     Dates: start: 2011, end: 2011

REACTIONS (10)
  - Completed suicide [None]
  - Vomiting [None]
  - Abdominal pain [None]
  - Hypotension [None]
  - Platelet count decreased [None]
  - Coagulopathy [None]
  - Hepatic function abnormal [None]
  - Renal impairment [None]
  - Mental status changes [None]
  - Blood creatine phosphokinase increased [None]
